FAERS Safety Report 12434353 (Version 2)
Quarter: 2016Q3

REPORT INFORMATION
  Report Type: Spontaneous
  Country: JP (occurrence: JP)
  Receive Date: 20160603
  Receipt Date: 20160816
  Transmission Date: 20161109
  Serious: Yes (Death)
  Sender: FDA-Public Use
  Company Number: JP-TEVA-664278ISR

PATIENT
  Age: 89 Year
  Sex: Female
  Weight: 40 kg

DRUGS (3)
  1. E-FEN BUCCAL [Suspect]
     Active Substance: FENTANYL CITRATE
     Dosage: 300 MICROGRAM DAILY; DAILY DOSE: 100-300 MICROGRAM
     Route: 002
     Dates: start: 20150714, end: 20150715
  2. E-FEN BUCCAL [Suspect]
     Active Substance: FENTANYL CITRATE
     Indication: BREAKTHROUGH PAIN
     Dosage: DAILY DOSE: 100-300 MICROGRAM
     Route: 002
     Dates: start: 20150714, end: 20150715
  3. FENTANYL. [Concomitant]
     Active Substance: FENTANYL
     Indication: CANCER PAIN
     Dosage: 2.1 MILLIGRAM DAILY;
     Route: 062
     Dates: start: 20150714, end: 20150715

REACTIONS (1)
  - Hepatic cancer [Fatal]

NARRATIVE: CASE EVENT DATE: 20150715
